FAERS Safety Report 4855880-2 (Version None)
Quarter: 2005Q4

REPORT INFORMATION
  Report Type: 
  Country: None (occurrence: None)
  Receive Date: 20051216
  Receipt Date: 20050311
  Transmission Date: 20060501
  Serious: Yes (Hospitalization)
  Sender: FDA-Public Use
  Company Number: 2005UW04059

PATIENT
  Age: 68 Year
  Sex: Female
  Weight: 63.9 kg

DRUGS (22)
  1. IRESSA [Suspect]
     Indication: NON-SMALL CELL LUNG CANCER
     Route: 048
     Dates: start: 20041221, end: 20050218
  2. IRESSA [Suspect]
     Route: 048
     Dates: start: 20050224
  3. LASIX [Concomitant]
     Indication: SWELLING
     Route: 048
     Dates: start: 20031119
  4. LOSEC [Concomitant]
     Indication: DYSPEPSIA
     Route: 048
     Dates: start: 20031119
  5. SPIRONOLACTONE [Concomitant]
     Indication: SWELLING
     Route: 048
     Dates: start: 20031119
  6. DIDROCAL [Concomitant]
     Indication: OSTEOPOROSIS
     Dosage: 400/1250
     Route: 048
     Dates: start: 20020101
  7. CITALOPRAM HYDROBROMIDE [Concomitant]
     Indication: DEPRESSION
     Route: 048
     Dates: start: 20041001
  8. TEMAZEPAM [Concomitant]
     Indication: SLEEP DISORDER
     Route: 048
     Dates: start: 20041001
  9. PROCHLORPERAZINE [Concomitant]
     Indication: NAUSEA
     Route: 048
     Dates: start: 20041123
  10. PROCHLORPERAZINE [Concomitant]
     Indication: VOMITING
     Route: 048
     Dates: start: 20041123
  11. CIPROFLOXACIN [Concomitant]
     Indication: PROPHYLAXIS
     Route: 048
     Dates: start: 20031119
  12. VENTOLIN [Concomitant]
     Indication: ASTHMA
     Route: 055
     Dates: start: 20031101
  13. SPIRIVA [Concomitant]
     Indication: CHRONIC OBSTRUCTIVE PULMONARY DISEASE
     Route: 055
     Dates: start: 20040101
  14. ADVAIR DISKUS 250/50 [Concomitant]
     Indication: LUNG NEOPLASM MALIGNANT
     Dosage: 50/250
     Route: 055
     Dates: start: 20040101
  15. MULTI-VITAMINS [Concomitant]
     Route: 048
     Dates: start: 20031119
  16. FERROUS GLUCONATE [Concomitant]
     Route: 048
     Dates: start: 20031119
  17. VITAMIN D [Concomitant]
     Indication: OSTEOPOROSIS
     Route: 048
     Dates: start: 20031119
  18. CALCIUM CARBONATE + VITAMIN D [Concomitant]
     Indication: OSTEOPOROSIS
     Route: 048
     Dates: start: 20031119
  19. IMOVANE [Concomitant]
     Indication: INSOMNIA
     Route: 048
     Dates: start: 20041214
  20. PANTOPRAZOLE SODIUM [Concomitant]
     Indication: OESOPHAGITIS
     Route: 048
     Dates: start: 20041214
  21. NORMAL SALINE [Concomitant]
     Indication: DEHYDRATION
     Route: 042
     Dates: start: 20050111
  22. K-DUR 10 [Concomitant]
     Indication: HYPOKALAEMIA
     Route: 042
     Dates: start: 20050111, end: 20050111

REACTIONS (5)
  - ANAEMIA [None]
  - EROSIVE OESOPHAGITIS [None]
  - HAEMATEMESIS [None]
  - OESOPHAGITIS ULCERATIVE [None]
  - PORTAL HYPERTENSIVE GASTROPATHY [None]
